FAERS Safety Report 5792995-9 (Version None)
Quarter: 2008Q2

REPORT INFORMATION
  Report Type: 
  Country: None (occurrence: None)
  Receive Date: 20080627
  Receipt Date: 20080617
  Transmission Date: 20081010
  Serious: No
  Sender: FDA-Public Use
  Company Number: PHEH2008US04903

PATIENT
  Sex: Female
  Weight: 101.59 kg

DRUGS (18)
  1. TEKTURNA [Suspect]
     Indication: HYPERTENSION
     Dosage: 150 MG, QD
     Dates: start: 20070501, end: 20070821
  2. QUINAPRIL [Concomitant]
     Dosage: 40 MG, UNK
  3. QUINAPRIL [Concomitant]
     Dosage: 80 MG, UNK
     Dates: start: 20071023
  4. FUROSEMIDE [Concomitant]
     Dosage: 40 MG, UNK
  5. FUROSEMIDE [Concomitant]
     Dosage: 20 MG, QD
  6. TOPROL-XL [Concomitant]
     Dosage: 50 MG, QD
  7. BYETTA [Concomitant]
     Dosage: 10 MG, BID
     Route: 058
  8. LANTUS [Concomitant]
     Dosage: 24 U, UNK
  9. VYTORIN [Concomitant]
     Dosage: 10/20 MG QD
  10. ASPIRIN [Concomitant]
     Dosage: 81 MG, QD
  11. CALCIUM [Concomitant]
     Dosage: 1200 UNK, UNK
  12. COQ10 [Concomitant]
  13. POTASSIUM CHLORIDE [Concomitant]
     Dosage: 10 MEQ, QD
  14. METFORMIN HCL [Concomitant]
     Dosage: 1 G, UNK
  15. XALATAN [Concomitant]
  16. OPTIVAR [Concomitant]
  17. MULTI-VITAMINS [Concomitant]
  18. NASONEX [Concomitant]

REACTIONS (2)
  - EOSINOPHILIA [None]
  - HYPERSENSITIVITY [None]
